FAERS Safety Report 14180092 (Version 1)
Quarter: 2017Q4

REPORT INFORMATION
  Report Type: Spontaneous
  Country: US (occurrence: US)
  Receive Date: 20171110
  Receipt Date: 20171110
  Transmission Date: 20180321
  Serious: Yes (Hospitalization, Other)
  Sender: FDA-Public Use
  Company Number: US-INDIVIOR LIMITED-INDV-106004-2017

PATIENT
  Age: 51 Year
  Sex: Male

DRUGS (1)
  1. SUBOXONE [Suspect]
     Active Substance: BUPRENORPHINE HYDROCHLORIDE\NALOXONE HYDROCHLORIDE
     Indication: DRUG USE DISORDER
     Dosage: 12 MG DAILY (HALF FIL IN MORNING AND WHOLE FILM IN EVENING)
     Route: 060

REACTIONS (8)
  - Product use issue [Unknown]
  - Cardiovascular disorder [Unknown]
  - Oral pain [Unknown]
  - Tooth disorder [Unknown]
  - Wrong technique in product usage process [Unknown]
  - Inadequate analgesia [Unknown]
  - Malaise [Unknown]
  - Condition aggravated [Unknown]
